APPROVED DRUG PRODUCT: VTAMA
Active Ingredient: TAPINAROF
Strength: 1%
Dosage Form/Route: CREAM;TOPICAL
Application: N215272 | Product #001
Applicant: ORGANON LLC
Approved: May 23, 2022 | RLD: Yes | RS: Yes | Type: RX

PATENTS:
Patent 11590088 | Expires: Nov 13, 2039
Patent 10426743 | Expires: May 19, 2036
Patent 11612573 | Expires: May 19, 2036
Patent 11612573 | Expires: May 19, 2036
Patent 11497718 | Expires: Nov 13, 2039
Patent 11938099 | Expires: Nov 13, 2039
Patent 10426743 | Expires: May 19, 2036
Patent 10647649 | Expires: Nov 13, 2038
Patent 11617724 | Expires: May 19, 2036
Patent 11597692 | Expires: Nov 13, 2038
Patent 10195160 | Expires: May 19, 2036
Patent 11622945 | Expires: May 19, 2036
Patent 11458108 | Expires: May 19, 2036

EXCLUSIVITY:
Code: I-956 | Date: Dec 12, 2027
Code: NCE | Date: May 23, 2027